FAERS Safety Report 10246985 (Version 1)
Quarter: 2014Q2

REPORT INFORMATION
  Report Type: Spontaneous
  Country: BR (occurrence: BR)
  Receive Date: 20140619
  Receipt Date: 20140619
  Transmission Date: 20141212
  Serious: Yes (Other)
  Sender: FDA-Public Use
  Company Number: BR-GLAXOSMITHKLINE-A1077741A

PATIENT
  Sex: Female

DRUGS (1)
  1. NIQUITIN PATCH [Suspect]
     Route: 062

REACTIONS (1)
  - Pneumonia [Unknown]
